FAERS Safety Report 7777343-7 (Version None)
Quarter: 2011Q3

REPORT INFORMATION
  Report Type: 
  Country: None (occurrence: None)
  Receive Date: 20110926
  Receipt Date: 20110923
  Transmission Date: 20111222
  Serious: Yes (Death, Life-Threatening, Hospitalization)
  Sender: FDA-Public Use
  Company Number: PHHO2011KR15071

PATIENT
  Sex: Male
  Weight: 57 kg

DRUGS (4)
  1. MYCOPHENOLIC ACID [Suspect]
     Indication: RENAL TRANSPLANT
     Dosage: 720 MG, UNK
     Route: 048
     Dates: start: 20110804, end: 20110829
  2. SULFAMETHOXAZOLE AND TRIMETHOPRIM [Concomitant]
     Indication: PROPHYLAXIS
     Dosage: 400/80 MG, BID
     Route: 048
     Dates: start: 20110810, end: 20110829
  3. BESZYME [Concomitant]
     Indication: ABDOMINAL DISCOMFORT
     Dosage: 1 DF, TID
     Route: 048
     Dates: start: 20110807, end: 20110829
  4. TRAMADOL [Concomitant]
     Indication: PAIN
     Dosage: 50 MG, UNK
     Route: 048
     Dates: start: 20110823, end: 20110829

REACTIONS (2)
  - SEPSIS [None]
  - PNEUMONIA [None]
